FAERS Safety Report 4506753-6 (Version None)
Quarter: 2004Q4

REPORT INFORMATION
  Report Type: 
  Country: None (occurrence: None)
  Receive Date: 20041117
  Receipt Date: 20041108
  Transmission Date: 20050328
  Serious: Yes (Other)
  Sender: FDA-Public Use
  Company Number: 2004-11-0641

PATIENT
  Sex: Male

DRUGS (1)
  1. TEMODAR [Suspect]
     Indication: GLIOBLASTOMA
     Dosage: ORAL
     Route: 048

REACTIONS (5)
  - BLINDNESS [None]
  - CD4 LYMPHOCYTES DECREASED [None]
  - HERPES VIRUS INFECTION [None]
  - LYMPHOPENIA [None]
  - SKIN INFECTION [None]
